FAERS Safety Report 10998136 (Version 2)
Quarter: 2015Q2

REPORT INFORMATION
  Report Type: Spontaneous
  Country: JP (occurrence: None)
  Receive Date: 20150406
  Receipt Date: 20150424
  Transmission Date: 20150821
  Serious: Yes (Other)
  Sender: FDA-Public Use
  Company Number: 2015-10982

PATIENT
  Age: 70 Year
  Sex: Female

DRUGS (7)
  1. AZOPT [Concomitant]
     Active Substance: BRINZOLAMIDE
  2. FLUMETHOLON (FLUOROMETHOLONE) EYE DROP [Concomitant]
     Active Substance: FLUOROMETHOLONE
  3. MIKELAN (CARTEOLOL HYDROCHLORIDE) [Concomitant]
  4. BRONUCK (BROMFENAC SODIUM) [Concomitant]
  5. EYLEA [Suspect]
     Active Substance: AFLIBERCEPT
     Indication: DIABETIC RETINAL OEDEMA
     Route: 031
     Dates: start: 20150116, end: 20150116
  6. CRAVIT (LEVOFLOXACIN) EYE DROPS, 0.5% [Concomitant]
     Active Substance: LEVOFLOXACIN
  7. ALPHAGAN P [Concomitant]
     Active Substance: BRIMONIDINE TARTRATE

REACTIONS (2)
  - Macular hole [None]
  - Visual acuity reduced [None]

NARRATIVE: CASE EVENT DATE: 20150119
